FAERS Safety Report 12694096 (Version 2)
Quarter: 2016Q3

REPORT INFORMATION
  Report Type: Spontaneous
  Country: AR (occurrence: AR)
  Receive Date: 20160829
  Receipt Date: 20160923
  Transmission Date: 20161109
  Serious: Yes (Hospitalization)
  Sender: FDA-Public Use
  Company Number: AR-ASTRAZENECA-2015SF27574

PATIENT
  Sex: Female

DRUGS (2)
  1. PILLS FOR SLEEP [Concomitant]
     Indication: SLEEP DISORDER
  2. FASLODEX [Suspect]
     Active Substance: FULVESTRANT
     Indication: BREAST CANCER FEMALE
     Route: 030
     Dates: start: 20150901

REACTIONS (8)
  - Hip fracture [Unknown]
  - Depression [Unknown]
  - Mass [Unknown]
  - Fall [Unknown]
  - Weight decreased [Unknown]
  - Speech disorder [Unknown]
  - Decreased appetite [Unknown]
  - Malaise [Unknown]

NARRATIVE: CASE EVENT DATE: 20151201
